FAERS Safety Report 6473597-8 (Version None)
Quarter: 2009Q4

REPORT INFORMATION
  Report Type: 
  Country: None (occurrence: None)
  Receive Date: 20091204
  Receipt Date: 20081009
  Transmission Date: 20100525
  Serious: Yes (Hospitalization)
  Sender: FDA-Public Use
  Company Number: US-ELI_LILLY_AND_COMPANY-US200810002500

PATIENT
  Sex: Female
  Weight: 99.773 kg

DRUGS (4)
  1. BYETTA [Suspect]
     Indication: TYPE 2 DIABETES MELLITUS
     Dosage: 5 UG, 2/D
     Route: 058
     Dates: start: 20070101, end: 20070101
  2. BYETTA [Suspect]
     Dosage: 10 UG, 2/D
     Route: 058
     Dates: start: 20070101
  3. SEROQUEL [Concomitant]
     Indication: SLEEP DISORDER
     Dates: start: 20070101
  4. LITHIUM CARBONATE [Concomitant]
     Dates: end: 20081008

REACTIONS (6)
  - BLOOD IRON DECREASED [None]
  - DECREASED APPETITE [None]
  - RED BLOOD CELL COUNT DECREASED [None]
  - THYROID FUNCTION TEST ABNORMAL [None]
  - UMBILICAL HERNIA [None]
  - WEIGHT DECREASED [None]
